FAERS Safety Report 12179315 (Version 3)
Quarter: 2016Q2

REPORT INFORMATION
  Report Type: Spontaneous
  Country: FR (occurrence: FR)
  Receive Date: 20160314
  Receipt Date: 20160406
  Transmission Date: 20160815
  Serious: Yes (Other)
  Sender: FDA-Public Use
  Company Number: FR-ABBVIE-15P-056-1518129-00

PATIENT
  Age: 59 Year
  Sex: Male
  Weight: 84 kg

DRUGS (10)
  1. VIEKIRAX [Suspect]
     Active Substance: OMBITASVIR\PARITAPREVIR\RITONAVIR
     Indication: HEPATITIS C
     Route: 048
     Dates: start: 20150915, end: 20151207
  2. BISOPROLOL [Concomitant]
     Active Substance: BISOPROLOL
     Indication: HYPERTENSION
     Route: 048
     Dates: start: 201504
  3. ASPIRIN. [Concomitant]
     Active Substance: ASPIRIN
     Indication: PRODUCT USED FOR UNKNOWN INDICATION
     Dates: end: 20151207
  4. PREVISCAN [Interacting]
     Active Substance: FLUINDIONE
     Indication: STENT PLACEMENT
     Dosage: 1 AND 1/2 TABLET
     Route: 048
     Dates: start: 201504, end: 20151012
  5. ATORVASTATIN [Concomitant]
     Active Substance: ATORVASTATIN
     Indication: PRODUCT USED FOR UNKNOWN INDICATION
     Dates: end: 20151207
  6. EXVIERA [Interacting]
     Active Substance: DASABUVIR
     Indication: HEPATITIS C
     Route: 048
     Dates: start: 20150915, end: 20151207
  7. LYSINE ACETYLSALICYLIC [Concomitant]
     Active Substance: ASPIRIN LYSINE
     Indication: STENT PLACEMENT
     Route: 048
     Dates: start: 201504
  8. PREVISCAN [Interacting]
     Active Substance: FLUINDIONE
     Dosage: INCREASED DOSE
     Route: 048
     Dates: start: 20151012, end: 20160122
  9. PREVISCAN [Interacting]
     Active Substance: FLUINDIONE
     Dosage: INCREASED DOSE
     Route: 048
     Dates: start: 20160122
  10. MILNACIPRAN [Concomitant]
     Active Substance: MILNACIPRAN
     Indication: DEPRESSION
     Route: 048
     Dates: start: 201601

REACTIONS (3)
  - Drug interaction [Unknown]
  - Drug effect decreased [Unknown]
  - Coagulation time shortened [Not Recovered/Not Resolved]

NARRATIVE: CASE EVENT DATE: 20151012
